FAERS Safety Report 23500876 (Version 1)
Quarter: 2024Q1

REPORT INFORMATION
  Report Type: Spontaneous
  Country: GB (occurrence: GB)
  Receive Date: 20240208
  Receipt Date: 20240208
  Transmission Date: 20240409
  Serious: Yes (Hospitalization, Other)
  Sender: FDA-Public Use
  Company Number: None

PATIENT
  Age: 45 Year
  Sex: Female

DRUGS (2)
  1. TRANEXAMIC ACID [Suspect]
     Active Substance: TRANEXAMIC ACID
     Indication: Heavy menstrual bleeding
     Dosage: UNK
     Dates: start: 20240103, end: 20240106
  2. AMOXICILLIN [Concomitant]
     Active Substance: AMOXICILLIN
     Indication: White blood cell count
     Dosage: UNK
     Dates: start: 20240108, end: 20240112

REACTIONS (1)
  - Tonic convulsion [Recovering/Resolving]

NARRATIVE: CASE EVENT DATE: 20240120
